FAERS Safety Report 23183841 (Version 1)
Quarter: 2023Q4

REPORT INFORMATION
  Report Type: Report from Study
  Country: US (occurrence: US)
  Receive Date: 20231114
  Receipt Date: 20231114
  Transmission Date: 20240109
  Serious: Yes (Hospitalization)
  Sender: FDA-Public Use
  Company Number: US-ABBVIE-5490929

PATIENT
  Sex: Male

DRUGS (1)
  1. HUMIRA [Suspect]
     Active Substance: ADALIMUMAB
     Indication: Rheumatoid arthritis
     Dosage: HUMIRA CITRATE FREE PEN; FORM STRENGTH: 40 MILLIGRAM
     Route: 058

REACTIONS (2)
  - Concussion [Not Recovered/Not Resolved]
  - Road traffic accident [Unknown]
